FAERS Safety Report 6195071-9 (Version None)
Quarter: 2009Q2

REPORT INFORMATION
  Report Type: 
  Country: None (occurrence: None)
  Receive Date: 20090514
  Receipt Date: 20090504
  Transmission Date: 20091009
  Serious: Yes (Hospitalization)
  Sender: FDA-Public Use
  Company Number: 220002K09IRL

PATIENT
  Sex: Female

DRUGS (1)
  1. SAIZEN [Suspect]
     Dosage: 0.6 MG
     Dates: start: 20081024

REACTIONS (2)
  - HYPERTENSION [None]
  - TACHYCARDIA [None]
